FAERS Safety Report 9054009 (Version 1)
Quarter: 2013Q1

REPORT INFORMATION
  Report Type: Spontaneous
  Country: PE (occurrence: PE)
  Receive Date: 20130208
  Receipt Date: 20130208
  Transmission Date: 20140127
  Serious: Yes (Other)
  Sender: FDA-Public Use
  Company Number: PE-PFIZER INC-2013053041

PATIENT
  Age: 75 Year
  Sex: Male

DRUGS (2)
  1. LIPITOR [Suspect]
     Dosage: UNK
     Route: 048
     Dates: start: 1998
  2. ACCUPRIL [Suspect]
     Dosage: UNK
     Route: 048
     Dates: start: 1998

REACTIONS (3)
  - Diplegia [Recovered/Resolved]
  - Diplegia [Recovered/Resolved]
  - Road traffic accident [Recovered/Resolved]
